FAERS Safety Report 6064107-8 (Version None)
Quarter: 2009Q1

REPORT INFORMATION
  Report Type: 
  Country: None (occurrence: None)
  Receive Date: 20090203
  Receipt Date: 20090128
  Transmission Date: 20090719
  Serious: Yes (Hospitalization)
  Sender: FDA-Public Use
  Company Number: DL2009043

PATIENT
  Age: 22 Year
  Sex: Female

DRUGS (2)
  1. MIFEPRISTONE TABLETS, 200 MG (DANCO LABS) [Suspect]
     Indication: ABORTION INDUCED
     Dosage: 200 MG, ORAL
     Route: 048
  2. MISOPROSTOL [Suspect]
     Dosage: 800 MCG DAY 1 + 12 HOURS
     Route: 002

REACTIONS (3)
  - BETA HAEMOLYTIC STREPTOCOCCAL INFECTION [None]
  - NECROTISING FASCIITIS [None]
  - TOXIC SHOCK SYNDROME [None]
